FAERS Safety Report 8473430 (Version 3)
Quarter: 2013Q2

REPORT INFORMATION
  Report Type: Spontaneous
  Country: US (occurrence: US)
  Receive Date: 20120323
  Receipt Date: 20130507
  Transmission Date: 20140414
  Serious: No
  Sender: FDA-Public Use
  Company Number: US-BAYER-2012-024911

PATIENT
  Age: 25 Year
  Sex: Female
  Weight: 111.11 kg

DRUGS (3)
  1. MIRENA [Suspect]
     Indication: CONTRACEPTION
     Dosage: 20 MCG/24HR, CONT
     Route: 015
     Dates: start: 20110523, end: 20111111
  2. TOPAMAX [Concomitant]
     Dosage: 25 MG, UNK
     Route: 048
  3. CARBAMAZEPINE [Concomitant]
     Dosage: DAILY DOSE 300 MG
     Route: 048

REACTIONS (2)
  - Pregnancy with contraceptive device [Recovered/Resolved]
  - Drug ineffective [None]
